FAERS Safety Report 5663835-3 (Version None)
Quarter: 2008Q1

REPORT INFORMATION
  Report Type: 
  Country: None (occurrence: None)
  Receive Date: 20080311
  Receipt Date: 20080226
  Transmission Date: 20080703
  Serious: Yes (Hospitalization)
  Sender: FDA-Public Use
  Company Number: 6041102

PATIENT
  Age: 26 Year
  Sex: Female

DRUGS (5)
  1. BISOPROLOL FUMARATE [Suspect]
     Indication: TACHYCARDIA
     Dosage: 10 MG (10 MG, 1 IN 1 D) ORAL; 10 MG (10 MG, 1 D) ORAL; 5 MG (5 MG, 1 D) ORAL
     Route: 048
     Dates: start: 20061001, end: 20061201
  2. BISOPROLOL FUMARATE [Suspect]
     Indication: TACHYCARDIA
     Dosage: 10 MG (10 MG, 1 IN 1 D) ORAL; 10 MG (10 MG, 1 D) ORAL; 5 MG (5 MG, 1 D) ORAL
     Route: 048
     Dates: start: 20070801, end: 20070901
  3. BISOPROLOL FUMARATE [Suspect]
     Indication: TACHYCARDIA
     Dosage: 10 MG (10 MG, 1 IN 1 D) ORAL; 10 MG (10 MG, 1 D) ORAL; 5 MG (5 MG, 1 D) ORAL
     Route: 048
     Dates: start: 20070901
  4. BISOPROLOL (TABLET) (BISOPROLOL) [Suspect]
     Indication: TACHYCARDIA
     Route: 048
     Dates: start: 20070101, end: 20070601
  5. VERAPAMIL [Concomitant]

REACTIONS (5)
  - ANOREXIA [None]
  - BRADYCARDIA [None]
  - DEPRESSION [None]
  - REFLUX GASTRITIS [None]
  - WEIGHT DECREASED [None]
